FAERS Safety Report 24324063 (Version 1)
Quarter: 2024Q3

REPORT INFORMATION
  Report Type: Spontaneous
  Country: FI (occurrence: FI)
  Receive Date: 20240916
  Receipt Date: 20240916
  Transmission Date: 20241017
  Serious: Yes (Life-Threatening, Hospitalization, Other)
  Sender: SANDOZ
  Company Number: FI-Hameln pharma plus gmbh-HAM20200200003

PATIENT
  Age: 64 Year
  Sex: Male

DRUGS (10)
  1. ONDANSETRON [Suspect]
     Active Substance: ONDANSETRON
     Indication: Nausea
     Dosage: 12 MG, QD
     Route: 042
  2. ONDANSETRON [Suspect]
     Active Substance: ONDANSETRON
     Indication: Vomiting
  3. ZUCLOPENTHIXOL [Suspect]
     Active Substance: ZUCLOPENTHIXOL
     Indication: Schizophrenia
     Dosage: 150 MG, TIW
     Route: 030
  4. ACETAZOLAMIDE [Concomitant]
     Active Substance: ACETAZOLAMIDE
     Indication: Product used for unknown indication
     Dosage: UNK
     Route: 042
  5. CEFTRIAXONE [Concomitant]
     Active Substance: CEFTRIAXONE\CEFTRIAXONE SODIUM
     Indication: Sepsis
     Dosage: 2 G (1X1)
     Route: 042
  6. CEFUROXIME [Concomitant]
     Active Substance: CEFUROXIME
     Indication: Antibiotic therapy
     Dosage: 2 G, QD
     Route: 042
  7. CEFUROXIME [Concomitant]
     Active Substance: CEFUROXIME
     Indication: Pyelonephritis
     Dosage: UNK
     Route: 042
  8. DEXTROSE [Concomitant]
     Active Substance: DEXTROSE\DEXTROSE MONOHYDRATE
     Indication: Dehydration
     Dosage: UNK
     Route: 042
  9. POTASSIUM CHLORIDE [Concomitant]
     Active Substance: POTASSIUM CHLORIDE
     Indication: Hypokalaemia
     Dosage: UNK
     Route: 042
  10. RINGERS SOLUTION [Concomitant]
     Active Substance: CALCIUM CHLORIDE\POTASSIUM CHLORIDE\SODIUM CHLORIDE
     Indication: Dehydration
     Dosage: UNK
     Route: 065

REACTIONS (8)
  - Cardiac arrest [Recovered/Resolved]
  - Electrocardiogram QT prolonged [Unknown]
  - Torsade de pointes [Recovered/Resolved]
  - Pulse absent [Unknown]
  - Metabolic alkalosis [Unknown]
  - Dehydration [Unknown]
  - Hypokalaemia [Unknown]
  - Arrhythmia [Unknown]
